FAERS Safety Report 10210893 (Version 2)
Quarter: 2014Q3

REPORT INFORMATION
  Report Type: Spontaneous
  Country: US (occurrence: None)
  Receive Date: 20140528
  Receipt Date: 20140801
  Transmission Date: 20150326
  Serious: Yes (Other)
  Sender: FDA-Public Use
  Company Number: 2014US003196

PATIENT
  Age: 70 Year
  Sex: Female

DRUGS (1)
  1. ICLUSIG [Suspect]
     Active Substance: PONATINIB
     Indication: ACUTE LYMPHOCYTIC LEUKAEMIA
     Route: 048
     Dates: start: 20140127

REACTIONS (12)
  - Pain in extremity [None]
  - Abdominal distension [None]
  - Vomiting [None]
  - Joint stiffness [None]
  - Dyspnoea [None]
  - Gastric dilatation [None]
  - Headache [None]
  - Diarrhoea [None]
  - Pleuritic pain [None]
  - Bone pain [None]
  - Pulmonary pain [None]
  - Abdominal operation [None]

NARRATIVE: CASE EVENT DATE: 201405
